FAERS Safety Report 4424312-0 (Version None)
Quarter: 2004Q3

REPORT INFORMATION
  Report Type: 
  Country: None (occurrence: None)
  Receive Date: 20040809
  Receipt Date: 20040729
  Transmission Date: 20050211
  Serious: Yes (Hospitalization)
  Sender: FDA-Public Use
  Company Number: 2004224710US

PATIENT
  Age: 83 Year
  Sex: Male
  Weight: 82.1 kg

DRUGS (8)
  1. BEXTRA [Suspect]
  2. MEMANTINE HCL [Suspect]
     Indication: DEMENTIA ALZHEIMER'S TYPE
  3. GALANTAMINE(GALANTAMINE) [Suspect]
     Indication: DEMENTIA ALZHEIMER'S TYPE
  4. PANTOPRAZOLE [Concomitant]
  5. PRAVACHOL [Concomitant]
  6. ASASANTIN [Concomitant]
  7. COLCHICINE [Concomitant]
  8. PRINZIDE [Concomitant]

REACTIONS (9)
  - DEHYDRATION [None]
  - DRUG ERUPTION [None]
  - HYPOTENSION [None]
  - HYPOVOLAEMIA [None]
  - MALAISE [None]
  - PYREXIA [None]
  - RENAL FAILURE ACUTE [None]
  - RENAL FAILURE CHRONIC [None]
  - SOMNOLENCE [None]
